FAERS Safety Report 22963281 (Version 2)
Quarter: 2024Q4

REPORT INFORMATION
  Report Type: Other
  Country: JP (occurrence: JP)
  Receive Date: 20230920
  Receipt Date: 20241206
  Transmission Date: 20250115
  Serious: Yes (Death, Hospitalization, Other)
  Sender: EMD SERONO INC
  Company Number: JP-Merck Healthcare KGaA-2023474034

PATIENT
  Age: 49 Year
  Sex: Female
  Weight: 47 kg

DRUGS (1)
  1. BAVENCIO [Suspect]
     Active Substance: AVELUMAB
     Indication: Neuroendocrine carcinoma of the skin
     Dates: start: 20210113, end: 20221014

REACTIONS (4)
  - Disease progression [Fatal]
  - Cholangitis [Recovered/Resolved]
  - Bile duct stenosis [Unknown]
  - Device occlusion [Unknown]

NARRATIVE: CASE EVENT DATE: 20210401
